FAERS Safety Report 8438010-X (Version None)
Quarter: 2012Q2

REPORT INFORMATION
  Report Type: 
  Country: None (occurrence: None)
  Receive Date: 20120614
  Receipt Date: 20120604
  Transmission Date: 20120825
  Serious: No
  Sender: FDA-Public Use
  Company Number: US-AMGEN-USASP2012031023

PATIENT
  Age: 87 Year
  Sex: Female
  Weight: 59.229 kg

DRUGS (3)
  1. CALCIUM [Concomitant]
  2. PROLIA [Suspect]
     Indication: OSTEOPOROSIS POSTMENOPAUSAL
     Dosage: 60 MG, Q6MO
     Dates: start: 20120130
  3. VITAMIN D [Concomitant]

REACTIONS (2)
  - NAIL DISORDER [None]
  - ONYCHOCLASIS [None]
